FAERS Safety Report 13973932 (Version 1)
Quarter: 2017Q3

REPORT INFORMATION
  Report Type: Spontaneous
  Country: US (occurrence: US)
  Receive Date: 20170915
  Receipt Date: 20170915
  Transmission Date: 20171128
  Serious: Yes (Other)
  Sender: FDA-Public Use
  Company Number: US-ACCORD-058367

PATIENT
  Age: 17 Year
  Sex: Male

DRUGS (5)
  1. CLOZAPINE. [Suspect]
     Active Substance: CLOZAPINE
     Indication: SCHIZOAFFECTIVE DISORDER BIPOLAR TYPE
     Dosage: INITIALLY STARTED WITH 100 MG DAILY THEN ESCALATED TO 350 MG DAILY IN MAR-2016
     Dates: start: 201603
  2. LITHIUM. [Suspect]
     Active Substance: LITHIUM
     Indication: MOOD ALTERED
     Dosage: INCREASED TO 450 MG PO BID IN MAR-2016
     Route: 048
     Dates: start: 201602, end: 201705
  3. CITALOPRAM [Concomitant]
     Active Substance: CITALOPRAM HYDROBROMIDE
  4. ATENOLOL/ATENOLOL HYDROCHLORIDE [Concomitant]
  5. CLONAZEPAM. [Concomitant]
     Active Substance: CLONAZEPAM

REACTIONS (3)
  - Dyskinesia [Recovering/Resolving]
  - Dysphemia [Recovering/Resolving]
  - Epilepsy [Unknown]
